FAERS Safety Report 21249835 (Version 2)
Quarter: 2022Q3

REPORT INFORMATION
  Report Type: Spontaneous
  Country: US (occurrence: US)
  Receive Date: 20220824
  Receipt Date: 20220825
  Transmission Date: 20221027
  Serious: Yes (Other)
  Sender: FDA-Public Use
  Company Number: US-SA-SAC20220823001347

PATIENT
  Sex: Female

DRUGS (2)
  1. DUPIXENT [Suspect]
     Active Substance: DUPILUMAB
     Indication: Dermatitis atopic
     Dosage: UNK UNK, 1X
     Route: 058
  2. DUPIXENT [Suspect]
     Active Substance: DUPILUMAB
     Dosage: 300 MG, QOW
     Route: 058

REACTIONS (8)
  - Haemorrhage subcutaneous [Unknown]
  - Injection site rash [Unknown]
  - Erythema [Unknown]
  - Rash macular [Unknown]
  - Rash papular [Unknown]
  - Rash pruritic [Unknown]
  - Dermatitis [Unknown]
  - Drug hypersensitivity [Unknown]
